FAERS Safety Report 9517916 (Version 2)
Quarter: 2013Q4

REPORT INFORMATION
  Report Type: Spontaneous
  Country: US (occurrence: US)
  Receive Date: 20130912
  Receipt Date: 20131023
  Transmission Date: 20140711
  Serious: No
  Sender: FDA-Public Use
  Company Number: US-009507513-1309USA004363

PATIENT
  Age: 79 Year
  Sex: Male
  Weight: 74.38 kg

DRUGS (1)
  1. NASONEX [Suspect]
     Dosage: UNK
     Route: 055

REACTIONS (5)
  - Ear discomfort [Not Recovered/Not Resolved]
  - Throat irritation [Recovered/Resolved]
  - Wrong technique in drug usage process [Unknown]
  - Nasal discomfort [Recovered/Resolved]
  - Drug administration error [Unknown]
